FAERS Safety Report 4364482-6 (Version None)
Quarter: 2004Q2

REPORT INFORMATION
  Report Type: 
  Country: None (occurrence: None)
  Receive Date: 20040519
  Receipt Date: 20040311
  Transmission Date: 20050107
  Serious: Yes (Life-Threatening, Hospitalization)
  Sender: FDA-Public Use
  Company Number: 04P-163-0247003-00

PATIENT
  Age: 5 Year
  Sex: Male
  Weight: 21.7727 kg

DRUGS (3)
  1. DEPAKOTE [Suspect]
     Indication: CONVULSION
     Dosage: 250 MG, 2 IN 1 D, PER ORAL
     Route: 048
     Dates: start: 20031129, end: 20031203
  2. DEPAKOTE ER [Suspect]
     Indication: CONVULSION
     Dosage: 250 MG, 3 IN 1 D, ORAL
     Route: 048
     Dates: start: 20031222
  3. CLONAZEPAM [Concomitant]

REACTIONS (5)
  - CONVULSION [None]
  - DRUG LEVEL INCREASED [None]
  - DRUG TOXICITY [None]
  - MEDICATION ERROR [None]
  - STATUS EPILEPTICUS [None]
